FAERS Safety Report 19055049 (Version 1)
Quarter: 2021Q1

REPORT INFORMATION
  Report Type: Spontaneous
  Country: IT (occurrence: IT)
  Receive Date: 20210325
  Receipt Date: 20210325
  Transmission Date: 20210420
  Serious: Yes (Death, Life-Threatening, Hospitalization, Disabling, Other)
  Sender: FDA-Public Use
  Company Number: IT-TEVA-2021-IT-1892903

PATIENT
  Age: 55 Year
  Sex: Male

DRUGS (14)
  1. METHYLPREDNISOLONE. [Suspect]
     Active Substance: METHYLPREDNISOLONE
     Indication: IMMUNOSUPPRESSANT DRUG THERAPY
  2. METHYLPREDNISOLONE. [Suspect]
     Active Substance: METHYLPREDNISOLONE
     Indication: DERMATOMYOSITIS
     Dosage: .7 MG/KG DAILY; METHYLPREDNISOLONE 0.7 MG/KG DAILY TO BE SLOWLY TAPERED
     Route: 048
  3. PREDNISONE. [Suspect]
     Active Substance: PREDNISONE
     Indication: IMMUNOSUPPRESSANT DRUG THERAPY
  4. MYCOPHENOLATE MOFETIL. [Suspect]
     Active Substance: MYCOPHENOLATE MOFETIL
     Indication: IMMUNOSUPPRESSANT DRUG THERAPY
     Dosage: 3 GRAM DAILY; WHICH WAS INCREASED PROGRESSIVELY UP TO 3 G DAILY OVER 3 WEEKS.
     Route: 065
  5. BEGELOMAB. [Suspect]
     Active Substance: BEGELOMAB
     Indication: DERMATOMYOSITIS
     Dosage: 4 MG/M2 DAILY; DOSAGE OF 4 MG/M 2 DAILY FOR 5 CONSECUTIVE DAYS; 3 CYCLES OF 5?DAYS
     Route: 041
  6. IMMUNOGLOBULINS (IVIG) [Suspect]
     Active Substance: HUMAN IMMUNOGLOBULIN G
     Indication: DERMATOMYOSITIS
     Dosage: 2 G/KG OVER 5 CONSECUTIVE DAYS
     Route: 042
  7. RITUXIMAB. [Suspect]
     Active Substance: RITUXIMAB
     Indication: IMMUNOSUPPRESSANT DRUG THERAPY
  8. BEGELOMAB. [Suspect]
     Active Substance: BEGELOMAB
     Dosage: MAINTENANCE THERAPY WITH BEGELOMAB AT THE DOSAGE OF 4 MG/M 2 EVERY OTHER DAY FOR ADDITIONAL ELEVEN I
     Route: 041
  9. PREDNISONE. [Suspect]
     Active Substance: PREDNISONE
     Indication: DERMATOMYOSITIS
     Route: 048
  10. MYCOPHENOLATE MOFETIL. [Suspect]
     Active Substance: MYCOPHENOLATE MOFETIL
     Indication: DERMATOMYOSITIS
     Dosage: 1 GRAM DAILY;
     Route: 065
  11. TACROLIMUS. [Suspect]
     Active Substance: TACROLIMUS
     Indication: DERMATOMYOSITIS
     Route: 065
  12. TACROLIMUS. [Suspect]
     Active Substance: TACROLIMUS
     Indication: IMMUNOSUPPRESSANT DRUG THERAPY
  13. RITUXIMAB. [Suspect]
     Active Substance: RITUXIMAB
     Indication: DERMATOMYOSITIS
     Dosage: ALTERNATE CYCLES
     Route: 065
  14. IMMUNOGLOBULINS (IVIG) [Suspect]
     Active Substance: HUMAN IMMUNOGLOBULIN G
     Indication: IMMUNOSUPPRESSANT DRUG THERAPY
     Dosage: A CYCLE OF IVIG 400 MG/KG
     Route: 042

REACTIONS (13)
  - Pneumonia aspiration [Fatal]
  - Dermatomyositis [Recovering/Resolving]
  - Fungal peritonitis [Unknown]
  - Enterococcal sepsis [Recovered/Resolved]
  - Acute hepatitis C [Fatal]
  - Candida infection [Unknown]
  - Vasculitis gastrointestinal [Recovered/Resolved]
  - Ileal perforation [Recovered/Resolved]
  - Condition aggravated [Unknown]
  - Treatment failure [Unknown]
  - Respiratory failure [Fatal]
  - Jejunal perforation [Recovered/Resolved]
  - Off label use [Unknown]
